FAERS Safety Report 4689554-8 (Version None)
Quarter: 2005Q2

REPORT INFORMATION
  Report Type: 
  Country: None (occurrence: None)
  Receive Date: 20050613
  Receipt Date: 20050613
  Transmission Date: 20051028
  Serious: Yes (Hospitalization)
  Sender: FDA-Public Use
  Company Number: None

PATIENT
  Age: 92 Year
  Sex: Female
  Weight: 42 kg

DRUGS (1)
  1. COUMADIN [Suspect]
     Indication: ATRIAL FIBRILLATION
     Dosage: PO
     Route: 048
     Dates: end: 20050301

REACTIONS (4)
  - COAGULATION TIME PROLONGED [None]
  - DYSPNOEA [None]
  - FATIGUE [None]
  - RECTAL HAEMORRHAGE [None]
